FAERS Safety Report 6373487-5 (Version None)
Quarter: 2009Q3

REPORT INFORMATION
  Report Type: 
  Country: None (occurrence: None)
  Receive Date: 20090924
  Receipt Date: 20090226
  Transmission Date: 20100115
  Serious: No
  Sender: FDA-Public Use
  Company Number: US-ASTRAZENECA-2009UW05313

PATIENT
  Age: 37 Year
  Sex: Male

DRUGS (2)
  1. SEROQUEL [Suspect]
     Route: 048
  2. A LOT OF OTHER MEDICATIONS [Concomitant]

REACTIONS (2)
  - METANEPHRINE URINE ABNORMAL [None]
  - NOREPINEPHRINE INCREASED [None]
